FAERS Safety Report 5339048-1 (Version None)
Quarter: 2007Q2

REPORT INFORMATION
  Report Type: 
  Country: None (occurrence: None)
  Receive Date: 20070405
  Receipt Date: 20061115
  Transmission Date: 20071010
  Serious: No
  Sender: FDA-Public Use
  Company Number: US200611003703

PATIENT

DRUGS (3)
  1. CYMBALTA [Suspect]
     Dosage: 60 MG
     Dates: end: 20061113
  2. CYMBALTA [Suspect]
     Dosage: 60 MG
     Dates: start: 20060101
  3. PAXIL [Concomitant]

REACTIONS (1)
  - BLOOD PRESSURE INCREASED [None]
